FAERS Safety Report 6004253-8 (Version None)
Quarter: 2008Q4

REPORT INFORMATION
  Report Type: 
  Country: None (occurrence: None)
  Receive Date: 20081216
  Receipt Date: 20081203
  Transmission Date: 20090506
  Serious: Yes (Hospitalization)
  Sender: FDA-Public Use
  Company Number: IT-PFIZER INC-2008010787

PATIENT

DRUGS (16)
  1. BLINDED *PLACEBO [Suspect]
     Indication: PULMONARY HYPERTENSION
     Dosage: 20 MG, 3X/DAY
     Route: 048
     Dates: start: 20070525
  2. BLINDED SILDENAFIL CITRATE [Suspect]
     Indication: PULMONARY HYPERTENSION
     Dosage: 20 MG, 3X/DAY
     Route: 048
     Dates: start: 20070525
  3. BOSENTAN [Concomitant]
     Route: 048
     Dates: start: 20061111
  4. ACETYLSALICYLIC ACID [Concomitant]
     Route: 048
     Dates: start: 20060926
  5. FUROSEMIDE [Concomitant]
     Dates: start: 20060728
  6. AZATIOPRIN [Concomitant]
     Dates: start: 20070223
  7. TIOTROPIUM BROMIDE [Concomitant]
     Dates: start: 20060728
  8. DEFLAZACORT [Concomitant]
     Dates: start: 20060728
  9. METHOTREXATE [Concomitant]
     Dates: start: 20070223, end: 20070525
  10. SILDENAFIL CITRATE [Suspect]
     Indication: PULMONARY ARTERIAL HYPERTENSION
     Dosage: 20 MG TID EVERY DAY TDD:60 MG
     Route: 048
     Dates: start: 20070525
  11. BOSENTAN 125MG DIE [Concomitant]
     Route: 048
     Dates: start: 20061111
  12. ACETIL SALYCILIC ACID [Concomitant]
     Route: 048
     Dates: start: 20060926
  13. FUROSEMIDE 25MG [Concomitant]
     Dates: start: 20060728
  14. AZATYOPRIN [Concomitant]
     Dates: start: 20070223
  15. TIOTROPIO BROMURO [Concomitant]
     Dates: start: 20060728
  16. METHOTREXATE SODIUM [Concomitant]
     Dates: start: 20070223, end: 20070525

REACTIONS (1)
  - OSTEOMYELITIS [None]
